FAERS Safety Report 24444447 (Version 2)
Quarter: 2024Q4

REPORT INFORMATION
  Report Type: Report from Study
  Country: ZA (occurrence: ZA)
  Receive Date: 20241016
  Receipt Date: 20241017
  Transmission Date: 20250115
  Serious: No
  Sender: ROCHE
  Company Number: ZA-ROCHE-2788851

PATIENT
  Age: 50 Year
  Sex: Female
  Weight: 130.0 kg

DRUGS (2)
  1. MABTHERA [Suspect]
     Active Substance: RITUXIMAB
     Indication: Rheumatoid arthritis
     Dosage: ON DAY 0 AND DAY 14 AND THEN EVERY 6 MONTHS
     Route: 042
  2. RITUXIMAB [Suspect]
     Active Substance: RITUXIMAB
     Indication: Rheumatoid arthritis
     Route: 041

REACTIONS (10)
  - Blood creatinine increased [Unknown]
  - Ill-defined disorder [Unknown]
  - Blood creatinine increased [Unknown]
  - Arthralgia [Unknown]
  - Joint stiffness [Unknown]
  - Joint swelling [Unknown]
  - C-reactive protein increased [Unknown]
  - Haemoglobin decreased [Unknown]
  - Rheumatoid arthritis [Unknown]
  - Urinary tract infection [Unknown]

NARRATIVE: CASE EVENT DATE: 20210923
